FAERS Safety Report 4486127-7 (Version None)
Quarter: 2004Q4

REPORT INFORMATION
  Report Type: 
  Country: None (occurrence: None)
  Receive Date: 20041026
  Receipt Date: 20041019
  Transmission Date: 20050328
  Serious: Yes (Life-Threatening, Hospitalization, Other)
  Sender: FDA-Public Use
  Company Number: BR-MERCK-0410BRA00390

PATIENT
  Age: 60 Year
  Sex: Female

DRUGS (3)
  1. VIOXX [Suspect]
     Indication: TENDONITIS
     Route: 048
     Dates: start: 20040901, end: 20040101
  2. VIOXX [Suspect]
     Indication: BACK PAIN
     Route: 048
     Dates: start: 20040901, end: 20040101
  3. CLOXAZOLAM [Concomitant]
     Indication: HYPERTENSION
     Route: 065

REACTIONS (4)
  - ACUTE MYOCARDIAL INFARCTION [None]
  - CARDIAC ARREST [None]
  - PANCREATIC DISORDER [None]
  - RESPIRATORY DISORDER [None]
